FAERS Safety Report 17063405 (Version 1)
Quarter: 2019Q4

REPORT INFORMATION
  Report Type: Spontaneous
  Country: US (occurrence: US)
  Receive Date: 20191122
  Receipt Date: 20191122
  Transmission Date: 20200122
  Serious: Yes (Hospitalization)
  Sender: FDA-Public Use
  Company Number: US-ZYDUS-043466

PATIENT
  Age: 72 Year
  Sex: Female

DRUGS (1)
  1. WARFARIN [Suspect]
     Active Substance: WARFARIN
     Indication: PULMONARY EMBOLISM
     Route: 048

REACTIONS (2)
  - Haemorrhage intracranial [Unknown]
  - Cerebral amyloid angiopathy [Unknown]
